FAERS Safety Report 4728139-1 (Version None)
Quarter: 2005Q3

REPORT INFORMATION
  Report Type: 
  Country: None (occurrence: None)
  Receive Date: 20050728
  Receipt Date: 20050728
  Transmission Date: 20060218
  Serious: No
  Sender: FDA-Public Use
  Company Number: None

PATIENT
  Age: 40 Year
  Sex: Female

DRUGS (4)
  1. FLUOROURACIL [Suspect]
     Indication: RECTAL CANCER
     Dosage: 400MG/M2 IVF + 2900MG/M2
     Route: 042
     Dates: start: 20050523
  2. RADIATION [Suspect]
     Indication: RECTAL CANCER
     Dosage: 45 GY X 25 DAYS
     Dates: start: 20050627
  3. BEVACIZUMAB [Suspect]
     Indication: RECTAL CANCER
     Dosage: 5MG/KG IV
     Route: 042
     Dates: start: 20050523
  4. OXALIPLATIN [Suspect]
     Indication: RECTAL CANCER
     Dosage: 85MG/M2 IV
     Route: 042
     Dates: start: 20050523

REACTIONS (3)
  - MENSTRUAL DISORDER [None]
  - THROMBOSIS [None]
  - UTERINE POLYP [None]
